FAERS Safety Report 9055746 (Version 1)
Quarter: 2013Q1

REPORT INFORMATION
  Report Type: Spontaneous
  Country: AU (occurrence: AU)
  Receive Date: 20130206
  Receipt Date: 20130206
  Transmission Date: 20140127
  Serious: Yes (Other)
  Sender: FDA-Public Use
  Company Number: AU-BAXTER-2013BAX003044

PATIENT
  Sex: Female

DRUGS (2)
  1. WATER [Suspect]
     Indication: PRODUCT USED FOR UNKNOWN INDICATION
     Route: 042
     Dates: start: 20130115, end: 20130115
  2. COPPER SULFATE [Suspect]
     Indication: PRODUCT USED FOR UNKNOWN INDICATION
     Route: 042
     Dates: start: 20130115, end: 20130115

REACTIONS (2)
  - Pruritus generalised [Recovered/Resolved]
  - Urticaria [Recovered/Resolved]
